FAERS Safety Report 5029124-5 (Version None)
Quarter: 2006Q2

REPORT INFORMATION
  Report Type: 
  Country: None (occurrence: None)
  Receive Date: 20060613
  Receipt Date: 20060609
  Transmission Date: 20061013
  Serious: Yes (Death)
  Sender: FDA-Public Use
  Company Number: 200308681

PATIENT
  Age: 71 Year
  Sex: Female

DRUGS (5)
  1. STREPTASE [Suspect]
     Indication: MYOCARDIAL INFARCTION
     Dosage: 105 MIU DAILY IV
     Route: 042
     Dates: start: 20030419, end: 20030419
  2. ASPIRIN [Suspect]
     Indication: MYOCARDIAL INFARCTION
     Dosage: 300 MG DAILY PO
     Route: 048
     Dates: start: 20030419, end: 20030419
  3. ENOXAPARIN SODIUM [Suspect]
     Indication: MYOCARDIAL INFARCTION
     Dosage: IV
     Route: 042
     Dates: start: 20030419, end: 20030420
  4. DEXTRAN [Concomitant]
  5. ISOTONIC SOLUTIONS [Concomitant]

REACTIONS (6)
  - CARDIAC ARREST [None]
  - CARDIAC TAMPONADE [None]
  - CARDIOGENIC SHOCK [None]
  - HYPOTENSION [None]
  - MYOCARDIAL RUPTURE [None]
  - PERICARDIAL EFFUSION [None]
